FAERS Safety Report 12475595 (Version 2)
Quarter: 2016Q2

REPORT INFORMATION
  Report Type: Report from Study
  Country: CO (occurrence: CO)
  Receive Date: 20160617
  Receipt Date: 20160628
  Transmission Date: 20160815
  Serious: Yes (Hospitalization)
  Sender: FDA-Public Use
  Company Number: CO-JNJFOC-20160613734

PATIENT
  Age: 53 Year
  Sex: Male
  Weight: 65 kg

DRUGS (1)
  1. RISPERDAL CONSTA [Suspect]
     Active Substance: RISPERIDONE
     Indication: SCHIZOPHRENIA
     Route: 030
     Dates: start: 20150915, end: 20160615

REACTIONS (4)
  - Condition aggravated [Recovering/Resolving]
  - Aggression [Recovering/Resolving]
  - Drug ineffective [Unknown]
  - Drug dose omission [Unknown]

NARRATIVE: CASE EVENT DATE: 20160514
